FAERS Safety Report 7690413-7 (Version None)
Quarter: 2011Q3

REPORT INFORMATION
  Report Type: 
  Country: None (occurrence: None)
  Receive Date: 20110818
  Receipt Date: 20110811
  Transmission Date: 20111222
  Serious: Yes (Other)
  Sender: FDA-Public Use
  Company Number: US-AMGEN-USASP2011041115

PATIENT
  Age: 76 Year
  Sex: Female

DRUGS (8)
  1. ALBUTEROL [Concomitant]
  2. PROLIA [Suspect]
     Indication: OSTEOPOROSIS
     Dates: start: 20110527
  3. SPIRIVA [Concomitant]
  4. CENTRUM SILVER                     /01292501/ [Concomitant]
  5. SYMBICORT [Concomitant]
  6. CALCIUM CITRATE [Concomitant]
  7. LUTEIN                             /01638501/ [Concomitant]
  8. HYDROCHLOROTHIAZIDE [Concomitant]

REACTIONS (2)
  - PRURITUS GENERALISED [None]
  - SQUAMOUS CELL CARCINOMA [None]
